FAERS Safety Report 5928100-5 (Version None)
Quarter: 2008Q4

REPORT INFORMATION
  Report Type: 
  Country: None (occurrence: None)
  Receive Date: 20081023
  Receipt Date: 20081014
  Transmission Date: 20090506
  Serious: Yes (Other)
  Sender: FDA-Public Use
  Company Number: B0543037A

PATIENT
  Age: 42 Year
  Sex: Male

DRUGS (3)
  1. LAMIVUDINE [Suspect]
     Indication: HIV INFECTION
     Dosage: 300MG PER DAY
     Route: 065
  2. ZALCITABINE [Suspect]
     Indication: HIV INFECTION
     Dosage: .75MG THREE TIMES PER DAY
     Route: 065
  3. NELFINAVIR [Suspect]
     Indication: HIV INFECTION
     Dosage: 750MG THREE TIMES PER DAY
     Route: 065

REACTIONS (12)
  - CHEILITIS [None]
  - CHEILITIS GRANULOMATOSA [None]
  - ERYTHEMA OF EYELID [None]
  - EYELID OEDEMA [None]
  - FACE OEDEMA [None]
  - GRANULOMA [None]
  - IMMUNE RECONSTITUTION SYNDROME [None]
  - LIP OEDEMA [None]
  - LYMPHADENOPATHY [None]
  - NASAL CYST [None]
  - PERIODONTITIS [None]
  - RED BLOOD CELL SEDIMENTATION RATE INCREASED [None]
